APPROVED DRUG PRODUCT: AMINOCAPROIC ACID
Active Ingredient: AMINOCAPROIC ACID
Strength: 500MG
Dosage Form/Route: TABLET;ORAL
Application: A212110 | Product #001
Applicant: ADAPTIS PHARMA PRIVATE LTD
Approved: Jun 14, 2021 | RLD: No | RS: No | Type: DISCN